FAERS Safety Report 4730209-9 (Version None)
Quarter: 2005Q3

REPORT INFORMATION
  Report Type: 
  Country: None (occurrence: None)
  Receive Date: 20050729
  Receipt Date: 20050729
  Transmission Date: 20060218
  Serious: No
  Sender: FDA-Public Use
  Company Number: None

PATIENT
  Sex: Female

DRUGS (14)
  1. TAXOL [Suspect]
     Dates: end: 20050707
  2. CARBOPLATIN [Suspect]
     Dates: end: 20050707
  3. NEULASTA [Suspect]
     Dates: end: 20050707
  4. LASIX [Concomitant]
  5. ALDACTONE [Concomitant]
  6. LACTULOSE [Concomitant]
  7. PROTONIX [Concomitant]
  8. MAGNESIUM OXIDE [Concomitant]
  9. SUCRALFATE [Concomitant]
  10. NADOLOL [Concomitant]
  11. OXYCODONE [Concomitant]
  12. MORPHINE [Concomitant]
  13. COMPAZINE [Concomitant]
  14. SLIDING SCALE INSULIN [Concomitant]

REACTIONS (11)
  - ABDOMINAL DISTENSION [None]
  - ABDOMINAL TENDERNESS [None]
  - CONFUSIONAL STATE [None]
  - DECREASED APPETITE [None]
  - DIARRHOEA [None]
  - FATIGUE [None]
  - MUCOSAL INFLAMMATION [None]
  - NAUSEA [None]
  - PAIN [None]
  - PYREXIA [None]
  - SOMNOLENCE [None]
